FAERS Safety Report 25540804 (Version 1)
Quarter: 2025Q3

REPORT INFORMATION
  Report Type: Spontaneous
  Country: US (occurrence: US)
  Receive Date: 20250710
  Receipt Date: 20250710
  Transmission Date: 20251021
  Serious: No
  Sender: SANOFI AVENTIS
  Company Number: US-SA-2025SA194494

PATIENT
  Sex: Female

DRUGS (8)
  1. DUPIXENT [Suspect]
     Active Substance: DUPILUMAB
     Indication: Acute kidney injury
     Dosage: 300 MG, QOW
     Route: 058
  2. AMITRIPTYLINE [Concomitant]
     Active Substance: AMITRIPTYLINE
  3. ATORVASTATIN [Concomitant]
     Active Substance: ATORVASTATIN
  4. ESCITALOPRAM [Concomitant]
     Active Substance: ESCITALOPRAM OXALATE
  5. GABAPENTIN [Concomitant]
     Active Substance: GABAPENTIN
  6. MELATONIN [Concomitant]
     Active Substance: MELATONIN
  7. MONTELUKAST [Concomitant]
     Active Substance: MONTELUKAST
  8. VITAMIN D3 [Concomitant]
     Active Substance: CHOLECALCIFEROL

REACTIONS (2)
  - Dyspnoea [Not Recovered/Not Resolved]
  - Product use in unapproved indication [Unknown]
